FAERS Safety Report 5481407-0 (Version None)
Quarter: 2007Q4

REPORT INFORMATION
  Report Type: 
  Country: None (occurrence: None)
  Receive Date: 20071010
  Receipt Date: 20071005
  Transmission Date: 20080405
  Serious: Yes (Hospitalization)
  Sender: FDA-Public Use
  Company Number: A0686366A

PATIENT
  Age: 55 Year
  Sex: Female

DRUGS (6)
  1. REQUIP [Suspect]
     Indication: RESTLESS LEGS SYNDROME
     Dosage: .5MG TWICE PER DAY
     Route: 048
     Dates: start: 20050101
  2. KEPPRA [Concomitant]
  3. WATER PILL [Concomitant]
  4. PAXIL [Concomitant]
  5. BLOOD PRESSURE MEDICATION [Concomitant]
  6. THYROID TAB [Concomitant]

REACTIONS (7)
  - ANXIETY [None]
  - BREAST CANCER [None]
  - DRUG INEFFECTIVE [None]
  - FATIGUE [None]
  - FEELING OF RELAXATION [None]
  - INSOMNIA [None]
  - PAIN [None]
